FAERS Safety Report 15864602 (Version 2)
Quarter: 2019Q1

REPORT INFORMATION
  Report Type: Report from Study
  Country: CR (occurrence: CR)
  Receive Date: 20190124
  Receipt Date: 20190130
  Transmission Date: 20190417
  Serious: Yes (Other)
  Sender: FDA-Public Use
  Company Number: PHHY2017CR175417

PATIENT
  Age: 38 Year
  Sex: Male

DRUGS (5)
  1. GILENYA [Suspect]
     Active Substance: FINGOLIMOD HYDROCHLORIDE
     Indication: MULTIPLE SCLEROSIS
     Dosage: 0.5 MG, QD
     Route: 048
  2. FOLIC ACID. [Concomitant]
     Active Substance: FOLIC ACID
     Indication: PRODUCT USED FOR UNKNOWN INDICATION
     Route: 065
  3. PLANTAGO PSYLLIUM [Concomitant]
     Active Substance: PLANTAGO INDICA WHOLE
     Indication: PRODUCT USED FOR UNKNOWN INDICATION
     Route: 065
  4. LACTULOSE. [Concomitant]
     Active Substance: LACTULOSE
     Indication: PRODUCT USED FOR UNKNOWN INDICATION
     Route: 065
  5. GILENYA [Suspect]
     Active Substance: FINGOLIMOD HYDROCHLORIDE
     Dosage: 0.5 MG, QD
     Route: 048
     Dates: start: 20171121

REACTIONS (11)
  - Multiple sclerosis relapse [Unknown]
  - Gait disturbance [Unknown]
  - Thermal burn [Recovering/Resolving]
  - Spinal disorder [Unknown]
  - Headache [Unknown]
  - Malaise [Unknown]
  - Feeling abnormal [Unknown]
  - Paraesthesia [Unknown]
  - Discomfort [Unknown]
  - Spinal pain [Unknown]
  - Hemiparesis [Unknown]

NARRATIVE: CASE EVENT DATE: 20190110
